FAERS Safety Report 10954900 (Version 1)
Quarter: 2015Q1

REPORT INFORMATION
  Report Type: Report from Study
  Country: BR (occurrence: BR)
  Receive Date: 20150325
  Receipt Date: 20150325
  Transmission Date: 20150721
  Serious: Yes (Other)
  Sender: FDA-Public Use
  Company Number: PHHY2015BR034173

PATIENT
  Sex: Male
  Weight: 95 kg

DRUGS (2)
  1. EXELON PATCH [Suspect]
     Active Substance: RIVASTIGMINE
     Indication: MEMORY IMPAIRMENT
     Dosage: 4.6 MG (PATCH 5CM2), EVERY 12 HOURS ON ALTERNATE DAYS
     Route: 062
     Dates: start: 2014, end: 201502
  2. PARAXONE [Concomitant]
     Indication: PRODUCT USED FOR UNKNOWN INDICATION
     Dosage: 2 DF (2 TABLETS), QD
     Route: 065
     Dates: start: 201502

REACTIONS (7)
  - Inappropriate schedule of drug administration [Unknown]
  - Atrial fibrillation [Unknown]
  - Dementia Alzheimer^s type [Unknown]
  - Memory impairment [Unknown]
  - Incorrect drug administration duration [Unknown]
  - Product use issue [Unknown]
  - Cerebrovascular accident [Unknown]
